FAERS Safety Report 21866870 (Version 1)
Quarter: 2023Q1

REPORT INFORMATION
  Report Type: Spontaneous
  Country: JP (occurrence: JP)
  Receive Date: 20230116
  Receipt Date: 20230116
  Transmission Date: 20230418
  Serious: Yes (Death, Other)
  Sender: FDA-Public Use
  Company Number: JP-MSD-M2023-00278

PATIENT
  Age: 81 Year
  Sex: Female

DRUGS (1)
  1. TEMODAL [Suspect]
     Active Substance: TEMOZOLOMIDE
     Indication: Malignant glioma
     Dosage: UNK
     Route: 048

REACTIONS (3)
  - Myelosuppression [Unknown]
  - Malignant neoplasm progression [Fatal]
  - Subcutaneous abscess [Unknown]

NARRATIVE: CASE EVENT DATE: 20220101
